FAERS Safety Report 26059808 (Version 2)
Quarter: 2025Q4

REPORT INFORMATION
  Report Type: Spontaneous
  Country: GB (occurrence: GB)
  Receive Date: 20251118
  Receipt Date: 20251126
  Transmission Date: 20260118
  Serious: Yes (Life-Threatening, Other)
  Sender: PFIZER
  Company Number: None

PATIENT
  Sex: Female
  Weight: 66 kg

DRUGS (2)
  1. CARBOPLATIN [Suspect]
     Active Substance: CARBOPLATIN
     Indication: Ovarian cancer
     Dosage: 200 MG
     Dates: end: 20251111
  2. PACLITAXEL [Suspect]
     Active Substance: PACLITAXEL
     Indication: Ovarian cancer
     Dosage: 132 MG
     Dates: start: 20251111

REACTIONS (5)
  - Myocardial infarction [Recovered/Resolved with Sequelae]
  - Loss of consciousness [Unknown]
  - Oxygen saturation decreased [Unknown]
  - Anaphylactic reaction [Unknown]
  - Snoring [Unknown]

NARRATIVE: CASE EVENT DATE: 20251111
